FAERS Safety Report 9255425 (Version 2)
Quarter: 2013Q2

REPORT INFORMATION
  Report Type: Spontaneous
  Country: US (occurrence: None)
  Receive Date: 20130418
  Receipt Date: 20130529
  Transmission Date: 20140414
  Serious: Yes (Other)
  Sender: FDA-Public Use
  Company Number: IMP_06662_2013

PATIENT
  Age: 44 Year
  Sex: Male

DRUGS (3)
  1. BUPROPION [Suspect]
     Indication: DEPRESSION
     Dosage: 2100 MG, SNORTED UP TO 7 TABLETS, 2100MG TOTAL/DAY (NOT THE PRESCRIBED DOSE) NASAL) (DF)
  2. BUPRENORPHINE [Concomitant]
  3. NALOXONE [Concomitant]

REACTIONS (7)
  - Euphoric mood [None]
  - Epistaxis [None]
  - Hypoaesthesia [None]
  - Malaise [None]
  - Paranoia [None]
  - Wrong technique in drug usage process [None]
  - Drug abuse [None]
